FAERS Safety Report 11835860 (Version 1)
Quarter: 2015Q4

REPORT INFORMATION
  Report Type: Spontaneous
  Country: US (occurrence: None)
  Receive Date: 20151214
  Receipt Date: 20151214
  Transmission Date: 20160305
  Serious: No
  Sender: FDA-Public Use
  Company Number: None

PATIENT
  Age: 63 Year
  Sex: Male
  Weight: 88.45 kg

DRUGS (7)
  1. OMEPERAZOLE [Concomitant]
  2. WARFARIN [Concomitant]
     Active Substance: WARFARIN
  3. ROLAIDS [Concomitant]
     Active Substance: CALCIUM CARBONATE\MAGNESIUM HYDROXIDE
  4. ATORVASTATIN [Concomitant]
     Active Substance: ATORVASTATIN
  5. TYLENOL [Concomitant]
     Active Substance: ACETAMINOPHEN
  6. CEFDINIR 300 MG [Suspect]
     Active Substance: CEFDINIR
     Indication: URINARY TRACT INFECTION
     Route: 048
     Dates: start: 20150313, end: 20150315
  7. IRON TABLETS TABLET [Concomitant]
     Active Substance: IRON

REACTIONS (3)
  - Joint swelling [None]
  - Arthritis [None]
  - Arthralgia [None]

NARRATIVE: CASE EVENT DATE: 20150315
